FAERS Safety Report 10284834 (Version 1)
Quarter: 2014Q3

REPORT INFORMATION
  Report Type: Spontaneous
  Country: US (occurrence: US)
  Receive Date: 20140708
  Receipt Date: 20140708
  Transmission Date: 20150326
  Serious: Yes (Hospitalization)
  Sender: FDA-Public Use
  Company Number: US-BRISTOL-MYERS SQUIBB COMPANY-21157144

PATIENT
  Age: 20 Year
  Sex: Female

DRUGS (3)
  1. ABILIFY [Suspect]
     Active Substance: ARIPIPRAZOLE
     Indication: SCHIZOPHRENIA
     Route: 048
     Dates: end: 2014
  2. AMANTADINE [Concomitant]
     Active Substance: AMANTADINE
  3. ABILIFY MAINTENA [Suspect]
     Active Substance: ARIPIPRAZOLE
     Indication: SCHIZOPHRENIA
     Route: 030
     Dates: start: 2014

REACTIONS (3)
  - Psychiatric decompensation [Not Recovered/Not Resolved]
  - Aggression [Not Recovered/Not Resolved]
  - Social avoidant behaviour [Not Recovered/Not Resolved]
